FAERS Safety Report 17306757 (Version 1)
Quarter: 2020Q1

REPORT INFORMATION
  Report Type: Spontaneous
  Country: HR (occurrence: HR)
  Receive Date: 20200123
  Receipt Date: 20200123
  Transmission Date: 20200409
  Serious: Yes (Other)
  Sender: FDA-Public Use
  Company Number: HR-PFIZER INC-2020029565

PATIENT
  Age: 72 Year
  Sex: Male

DRUGS (4)
  1. SUNITINIB MALATE. [Suspect]
     Active Substance: SUNITINIB MALATE
     Dosage: 37.5 MG, CYCLIC, DAILY SCHEME 2: 1
     Dates: start: 201805
  2. SUNITINIB MALATE. [Suspect]
     Active Substance: SUNITINIB MALATE
     Dosage: 37.5 MG, CYCLIC, DAILY SCHEME 2: 1
     Dates: start: 201912
  3. SUNITINIB MALATE. [Suspect]
     Active Substance: SUNITINIB MALATE
     Indication: RENAL CELL CARCINOMA
     Dosage: 50 MG, CYCLIC, DAILY SCHEME 4:2
     Dates: start: 201312
  4. SUNITINIB MALATE. [Suspect]
     Active Substance: SUNITINIB MALATE
     Dosage: 37.5 MG, CYCLIC, DAILY SCHEME 2: 1
     Dates: start: 201509

REACTIONS (9)
  - Colitis ulcerative [Unknown]
  - Hyperthyroidism [Unknown]
  - Colitis ulcerative [Unknown]
  - Colitis ulcerative [Unknown]
  - Arthralgia [Unknown]
  - Second primary malignancy [Unknown]
  - Colitis ulcerative [Unknown]
  - Thyroid neoplasm [Unknown]
  - Anal abscess [Unknown]

NARRATIVE: CASE EVENT DATE: 201410
